FAERS Safety Report 18971044 (Version 1)
Quarter: 2021Q1

REPORT INFORMATION
  Report Type: Spontaneous
  Country: KR (occurrence: KR)
  Receive Date: 20210305
  Receipt Date: 20210305
  Transmission Date: 20210420
  Serious: Yes (Hospitalization, Other)
  Sender: FDA-Public Use
  Company Number: KR-ACCORD-218857

PATIENT
  Age: 79 Year
  Sex: Male

DRUGS (1)
  1. TACROLIMUS. [Suspect]
     Active Substance: TACROLIMUS
     Indication: IMMUNOSUPPRESSANT DRUG THERAPY

REACTIONS (5)
  - Candida infection [Recovering/Resolving]
  - Fungal skin infection [Recovering/Resolving]
  - Onychomycosis [Recovering/Resolving]
  - Kaposi^s sarcoma [Recovering/Resolving]
  - Granuloma skin [Recovering/Resolving]
